FAERS Safety Report 6244933-2 (Version None)
Quarter: 2009Q2

REPORT INFORMATION
  Report Type: 
  Country: None (occurrence: None)
  Receive Date: 20090623
  Receipt Date: 20090623
  Transmission Date: 20091009
  Serious: Yes (Other)
  Sender: FDA-Public Use
  Company Number: None

PATIENT
  Sex: Female
  Weight: 81.6475 kg

DRUGS (2)
  1. LYRICA [Suspect]
     Indication: FIBROMYALGIA
     Dosage: 300MG DAILY PO
     Route: 048
     Dates: start: 20070604, end: 20070704
  2. LYRICA [Suspect]
     Indication: OSTEOARTHRITIS
     Dosage: 300MG DAILY PO
     Route: 048
     Dates: start: 20070604, end: 20070704

REACTIONS (6)
  - ANGIOEDEMA [None]
  - ANXIETY [None]
  - EYE SWELLING [None]
  - HEADACHE [None]
  - PAIN [None]
  - VERTIGO [None]
